FAERS Safety Report 19598304 (Version 2)
Quarter: 2021Q4

REPORT INFORMATION
  Report Type: Spontaneous
  Country: DE (occurrence: DE)
  Receive Date: 20210723
  Receipt Date: 20211017
  Transmission Date: 20220303
  Serious: Yes (Other)
  Sender: FDA-Public Use
  Company Number: DE-002147023-NVSC2021DE164270

PATIENT
  Age: 43 Year
  Sex: Female

DRUGS (1)
  1. AIMOVIG [Suspect]
     Active Substance: ERENUMAB-AOOE
     Indication: Product used for unknown indication
     Dosage: 70 MILLIGRAM, QMO
     Route: 065

REACTIONS (2)
  - Basedow^s disease [Unknown]
  - Palpitations [Unknown]

NARRATIVE: CASE EVENT DATE: 20210101
